FAERS Safety Report 15852095 (Version 1)
Quarter: 2019Q1

REPORT INFORMATION
  Report Type: Spontaneous
  Country: FR (occurrence: FR)
  Receive Date: 20190122
  Receipt Date: 20190122
  Transmission Date: 20190417
  Serious: Yes (Life-Threatening, Hospitalization, Other)
  Sender: FDA-Public Use
  Company Number: FR-AUROBINDO-AUR-APL-2019-002656

PATIENT
  Age: 65 Year
  Sex: Male
  Weight: 87 kg

DRUGS (5)
  1. CIFLOX                             /00697201/ [Suspect]
     Active Substance: CIPROFLOXACIN
     Indication: LUNG INFECTION
     Dosage: 1000 MILLIGRAM, DAILY (500 MG, BID)
     Route: 048
     Dates: start: 20160226, end: 20160301
  2. AMOXICILLIN+CLAVULANIC ACID [Suspect]
     Active Substance: AMOXICILLIN\CLAVULANIC ACID
     Dosage: 1 G, Q8H
     Route: 048
     Dates: start: 20160226, end: 20160301
  3. BACTRIM [Concomitant]
     Active Substance: SULFAMETHOXAZOLE\TRIMETHOPRIM
     Indication: PRODUCT USED FOR UNKNOWN INDICATION
     Dosage: UNK
     Route: 065
     Dates: start: 20160531, end: 20161220
  4. OFATUMUMAB [Concomitant]
     Active Substance: OFATUMUMAB
     Dosage: 200 MILLIGRAM
     Route: 042
     Dates: end: 20140701
  5. OFATUMUMAB [Concomitant]
     Active Substance: OFATUMUMAB
     Indication: CHRONIC LYMPHOCYTIC LEUKAEMIA
     Dosage: 300 MILLIGRAM
     Route: 042
     Dates: start: 20130708

REACTIONS (6)
  - Lung infection [Recovered/Resolved]
  - Acute respiratory distress syndrome [Unknown]
  - Agranulocytosis [Recovered/Resolved]
  - Pyrexia [Not Recovered/Not Resolved]
  - Haemolytic anaemia [Not Recovered/Not Resolved]
  - Lung lobectomy [Recovered/Resolved]

NARRATIVE: CASE EVENT DATE: 20160301
